FAERS Safety Report 8623684-0 (Version None)
Quarter: 2012Q3

REPORT INFORMATION
  Report Type: 
  Country: None (occurrence: None)
  Receive Date: 20120827
  Receipt Date: 20120823
  Transmission Date: 20120928
  Serious: Yes (Death)
  Sender: FDA-Public Use
  Company Number: NL-B.I. PHARMACEUTICALS,INC./RIDGEFIELD-2012-EU-04248EU

PATIENT
  Sex: Male
  Weight: 77 kg

DRUGS (6)
  1. ACETAMINOPHEN [Concomitant]
     Indication: PAIN
     Dosage: 3000 MG
     Route: 048
     Dates: start: 20110427
  2. DABIGATRAN [Suspect]
     Indication: CEREBROVASCULAR ACCIDENT PROPHYLAXIS
     Route: 048
     Dates: start: 20071212
  3. METOPROLOL SUCCINATE [Concomitant]
     Indication: HEART RATE
     Dosage: 100 MG
     Route: 048
     Dates: start: 20091227
  4. XYLORIC [Concomitant]
     Indication: GOUT
     Dosage: 300 MG
     Route: 048
     Dates: start: 20110329
  5. DABIGATRAN [Suspect]
     Indication: ATRIAL FIBRILLATION
  6. PERINDOPRIL ERBUMINE [Concomitant]
     Indication: HYPERTENSION
     Dosage: 8 MG
     Route: 048
     Dates: start: 20060413

REACTIONS (1)
  - AORTIC ANEURYSM [None]
